FAERS Safety Report 4850048-8 (Version None)
Quarter: 2005Q4

REPORT INFORMATION
  Report Type: 
  Country: None (occurrence: None)
  Receive Date: 20051209
  Receipt Date: 20051129
  Transmission Date: 20060501
  Serious: Yes (Death)
  Sender: FDA-Public Use
  Company Number: US-ABBOTT-05P-163-0318303-00

PATIENT
  Age: 35 Year
  Sex: Female

DRUGS (2)
  1. LEXAPRO [Suspect]
     Indication: COMPLETED SUICIDE
     Route: 048
     Dates: start: 20051001, end: 20051001
  2. LEXAPRO [Suspect]
     Indication: DEPRESSION
     Route: 048
     Dates: end: 20051001

REACTIONS (2)
  - COMPLETED SUICIDE [None]
  - INTENTIONAL OVERDOSE [None]
